FAERS Safety Report 4900510-4 (Version None)
Quarter: 2006Q1

REPORT INFORMATION
  Report Type: 
  Country: None (occurrence: None)
  Receive Date: 20060203
  Receipt Date: 20060126
  Transmission Date: 20060701
  Serious: Yes (Disabling)
  Sender: FDA-Public Use
  Company Number: US-MERCK-0601USA03162

PATIENT
  Age: 43 Year
  Sex: Male

DRUGS (2)
  1. VYTORIN [Suspect]
     Route: 048
     Dates: start: 20050101, end: 20060101
  2. GEMFIBROZIL [Concomitant]
     Route: 065

REACTIONS (15)
  - ANXIETY [None]
  - ARTHRALGIA [None]
  - BEDRIDDEN [None]
  - DYSPNOEA [None]
  - DYSSTASIA [None]
  - EMOTIONAL DISTRESS [None]
  - MOBILITY DECREASED [None]
  - MUSCLE SPASMS [None]
  - MUSCULAR WEAKNESS [None]
  - MYALGIA [None]
  - NAUSEA [None]
  - PAIN [None]
  - PAIN IN EXTREMITY [None]
  - STRESS [None]
  - SWELLING [None]
